FAERS Safety Report 6704854-5 (Version None)
Quarter: 2010Q2

REPORT INFORMATION
  Report Type: 
  Country: None (occurrence: None)
  Receive Date: 20100430
  Receipt Date: 20100119
  Transmission Date: 20101027
  Serious: No
  Sender: FDA-Public Use
  Company Number: US-ASTRAZENECA-2009SE33370

PATIENT
  Age: 74 Year
  Sex: Male
  Weight: 69.9 kg

DRUGS (9)
  1. NEXIUM [Suspect]
     Route: 048
     Dates: start: 20091201
  2. METFORMIN [Concomitant]
     Indication: BLOOD GLUCOSE ABNORMAL
  3. CELEBREX [Concomitant]
     Indication: ARTHRITIS
  4. ALOPURINOL [Concomitant]
     Indication: GOUT
  5. TRANXENE [Concomitant]
     Indication: SLEEP DISORDER
  6. AMBIEN [Concomitant]
     Indication: SLEEP DISORDER
  7. ZETIA [Concomitant]
     Indication: BLOOD CHOLESTEROL
  8. LOTREL [Concomitant]
     Indication: BLOOD PRESSURE
  9. RHINOCORT [Concomitant]
     Indication: SINUS DISORDER

REACTIONS (1)
  - BLOOD GLUCOSE DECREASED [None]
